FAERS Safety Report 20546343 (Version 1)
Quarter: 2022Q1

REPORT INFORMATION
  Report Type: Spontaneous
  Country: ES (occurrence: ES)
  Receive Date: 20220303
  Receipt Date: 20220303
  Transmission Date: 20220423
  Serious: Yes (Other)
  Sender: FDA-Public Use
  Company Number: ES-BAYER-2022A030934

PATIENT
  Age: 78 Year
  Sex: Female

DRUGS (2)
  1. REGORAFENIB [Suspect]
     Active Substance: REGORAFENIB
     Indication: Rectal cancer metastatic
     Dosage: 160 MG, QD 3WEEKS ON AND 1 WEEK OFF
     Dates: start: 201506
  2. REGORAFENIB [Suspect]
     Active Substance: REGORAFENIB
     Indication: Gastrointestinal stromal tumour
     Dosage: 120 MG, QD
     Dates: end: 201605

REACTIONS (4)
  - Rectal cancer [None]
  - Gastrointestinal stromal tumour [None]
  - Hypertension [None]
  - Diarrhoea [None]

NARRATIVE: CASE EVENT DATE: 20160501
